FAERS Safety Report 14848958 (Version 1)
Quarter: 2018Q2

REPORT INFORMATION
  Report Type: Spontaneous
  Country: GB (occurrence: GB)
  Receive Date: 20180504
  Receipt Date: 20180504
  Transmission Date: 20180711
  Serious: Yes (Hospitalization)
  Sender: FDA-Public Use
  Company Number: GB-PFIZER INC-1776675

PATIENT
  Age: 52 Year
  Sex: Female

DRUGS (3)
  1. METHOTREXATE SODIUM. [Suspect]
     Active Substance: METHOTREXATE SODIUM
     Indication: PSORIASIS
     Dosage: 1 DF, FREQ: 1 WEEK; INTERVAL: 1.
     Route: 042
  2. RED CLOVER /01428401/ [Interacting]
     Active Substance: RED CLOVER\DIETARY SUPPLEMENT
     Indication: MENOPAUSAL SYMPTOMS
     Dosage: 430 MG, FREQ: 1 WEEK; INTERVAL: 1.
     Route: 048
     Dates: start: 20130530, end: 20130603
  3. CITALOPRAM [Concomitant]
     Active Substance: CITALOPRAM HYDROBROMIDE
     Dosage: 10 MG, UNK

REACTIONS (4)
  - Toxicity to various agents [Recovered/Resolved]
  - Abdominal pain upper [Recovered/Resolved]
  - Drug interaction [Recovered/Resolved]
  - Vomiting [Recovered/Resolved]

NARRATIVE: CASE EVENT DATE: 20130601
